FAERS Safety Report 11517154 (Version 1)
Quarter: 2015Q3

REPORT INFORMATION
  Report Type: Spontaneous
  Country: US (occurrence: US)
  Receive Date: 20150917
  Receipt Date: 20150917
  Transmission Date: 20151125
  Serious: Yes (Hospitalization, Other)
  Sender: FDA-Public Use
  Company Number: US-GLAXOSMITHKLINE-US2015130912

PATIENT
  Sex: Male

DRUGS (17)
  1. ESCITALOPRAM [Concomitant]
     Active Substance: ESCITALOPRAM OXALATE
  2. DOCUSATE [Concomitant]
     Active Substance: DOCUSATE
  3. SODIUM CHLORIDE. [Concomitant]
     Active Substance: SODIUM CHLORIDE
  4. SPIRIVA [Concomitant]
     Active Substance: TIOTROPIUM BROMIDE MONOHYDRATE
  5. BACLOFEN. [Concomitant]
     Active Substance: BACLOFEN
  6. CETIRIZINE [Concomitant]
     Active Substance: CETIRIZINE HYDROCHLORIDE
  7. FINASTERIDE. [Concomitant]
     Active Substance: FINASTERIDE
  8. OMEPRAZOLE. [Concomitant]
     Active Substance: OMEPRAZOLE
  9. ADVAIR DISKUS [Suspect]
     Active Substance: FLUTICASONE PROPIONATE\SALMETEROL XINAFOATE
     Indication: CHRONIC OBSTRUCTIVE PULMONARY DISEASE
  10. ALBUTEROL INHALER [Concomitant]
     Active Substance: ALBUTEROL
  11. CELEBREX [Concomitant]
     Active Substance: CELECOXIB
  12. DESIPRAMINE [Concomitant]
     Active Substance: DESIPRAMINE
  13. ADVAIR DISKUS [Suspect]
     Active Substance: FLUTICASONE PROPIONATE\SALMETEROL XINAFOATE
     Indication: DYSPNOEA
     Dosage: 1 PUFF(S), BID
     Route: 055
  14. KEPPRA [Concomitant]
     Active Substance: LEVETIRACETAM
  15. FOLIC ACID. [Concomitant]
     Active Substance: FOLIC ACID
  16. OXYCODONE [Concomitant]
     Active Substance: OXYCODONE
  17. TAMSULOSIN [Concomitant]
     Active Substance: TAMSULOSIN

REACTIONS (5)
  - Seizure [Recovered/Resolved]
  - Dehydration [Recovered/Resolved]
  - Osteoporosis [Not Recovered/Not Resolved]
  - Lung neoplasm malignant [Not Recovered/Not Resolved]
  - Upper limb fracture [Not Recovered/Not Resolved]

NARRATIVE: CASE EVENT DATE: 2014
